FAERS Safety Report 6282348 (Version 2)
Quarter: 2017Q3

REPORT INFORMATION
  Report Type: Spontaneous
  Country: US (occurrence: US)
  Receive Date: 20070406
  Receipt Date: 20170928
  Transmission Date: 20171128
  Serious: Yes (Hospitalization, Other)
  Sender: FDA-Public Use
  Company Number: US-PFIZER INC-2006129884

PATIENT
  Sex: Male

DRUGS (2)
  1. BEXTRA [Suspect]
     Active Substance: VALDECOXIB
     Indication: ARTHRITIS
     Dosage: 20 MG, DAILY
     Route: 048
     Dates: start: 20030602, end: 20040714
  2. VIOXX [Suspect]
     Active Substance: ROFECOXIB
     Dosage: UNK
     Route: 048
     Dates: start: 20000101, end: 20040714

REACTIONS (1)
  - Ischaemic stroke [Unknown]

NARRATIVE: CASE EVENT DATE: 20040714
